FAERS Safety Report 6411389-6 (Version None)
Quarter: 2009Q4

REPORT INFORMATION
  Report Type: 
  Country: None (occurrence: None)
  Receive Date: 20091023
  Receipt Date: 20091013
  Transmission Date: 20100525
  Serious: Yes (Other)
  Sender: FDA-Public Use
  Company Number: JP-PFIZER INC-2009284120

PATIENT
  Age: 17 Year

DRUGS (4)
  1. SOMATROPIN [Suspect]
     Indication: GROWTH HORMONE DEFICIENCY
     Dosage: 1.1 MG, WEEKLY
     Route: 058
     Dates: start: 20070124, end: 20080227
  2. CORTRIL [Concomitant]
     Route: 048
  3. THYRADIN S [Concomitant]
     Route: 048
     Dates: start: 20070516
  4. TESTOSTERONE ENANTATE [Concomitant]
     Route: 030
     Dates: start: 20080130

REACTIONS (2)
  - CRANIOPHARYNGIOMA [None]
  - DISEASE PROGRESSION [None]
